FAERS Safety Report 12647483 (Version 1)
Quarter: 2016Q3

REPORT INFORMATION
  Report Type: Spontaneous
  Country: US (occurrence: None)
  Receive Date: 20160811
  Receipt Date: 20160811
  Transmission Date: 20161109
  Serious: Yes (Hospitalization)
  Sender: FDA-Public Use
  Company Number: None

PATIENT
  Age: 3 Year
  Sex: Male
  Weight: 14 kg

DRUGS (5)
  1. MERCAPTOPURINE. [Suspect]
     Active Substance: MERCAPTOPURINE
     Dates: end: 20160702
  2. CYCLOPHOSPHAMIDE. [Suspect]
     Active Substance: CYCLOPHOSPHAMIDE
     Dates: end: 20160622
  3. CYTARABINE. [Suspect]
     Active Substance: CYTARABINE
     Dates: end: 20160701
  4. ONCASPAR [Suspect]
     Active Substance: PEGASPARGASE
     Dates: end: 20160622
  5. VINCRISTINE SULFATE. [Suspect]
     Active Substance: VINCRISTINE SULFATE
     Dates: end: 20160622

REACTIONS (11)
  - Erythema [None]
  - Pyrexia [None]
  - Cellulitis [None]
  - Blood albumin decreased [None]
  - Candida infection [None]
  - Therapeutic response decreased [None]
  - Perirectal abscess [None]
  - Anal incontinence [None]
  - Anal fissure [None]
  - Impaired healing [None]
  - Abscess [None]

NARRATIVE: CASE EVENT DATE: 20160719
